FAERS Safety Report 10579182 (Version 1)
Quarter: 2014Q4

REPORT INFORMATION
  Report Type: Other
  Country: US (occurrence: CA)
  Receive Date: 20141112
  Receipt Date: 20141112
  Transmission Date: 20150529
  Serious: Yes (Other)
  Sender: FDA-Public Use
  Company Number: CA-FRI-1000072295

PATIENT
  Age: 75 Year
  Sex: Male

DRUGS (4)
  1. VENLAFAXINE [Concomitant]
     Active Substance: VENLAFAXINE HYDROCHLORIDE
  2. LITHIUM CARBONATE. [Suspect]
     Active Substance: LITHIUM CARBONATE
     Indication: BIPOLAR DISORDER
     Dosage: 600 MG
  3. LITHIUM CARBONATE. [Suspect]
     Active Substance: LITHIUM CARBONATE
     Indication: DEPRESSION
  4. ASENAPINE [Suspect]
     Active Substance: ASENAPINE
     Indication: MOOD ALTERED
     Dosage: 10 MG
     Route: 060

REACTIONS (2)
  - Mood altered [Recovered/Resolved]
  - Myasthenic syndrome [Recovered/Resolved]
